FAERS Safety Report 15695334 (Version 27)
Quarter: 2020Q4

REPORT INFORMATION
  Report Type: Spontaneous
  Country: CA (occurrence: CA)
  Receive Date: 20181206
  Receipt Date: 20201230
  Transmission Date: 20210113
  Serious: Yes (Other)
  Sender: FDA-Public Use
  Company Number: CA-CELLTRION INC.-2018CA024412

PATIENT

DRUGS (36)
  1. INFLECTRA [Suspect]
     Active Substance: INFLIXIMAB-DYYB
     Dosage: 300 MG, AT 0,2,6 WEEKS AND THEN EVERY 4 WEEKS
     Route: 042
     Dates: start: 20181207
  2. INFLECTRA [Suspect]
     Active Substance: INFLIXIMAB-DYYB
     Dosage: 300 MG, AT 0,2,6 WEEKS AND THEN EVERY 4 WEEKS
     Route: 042
     Dates: start: 20190429
  3. INFLECTRA [Suspect]
     Active Substance: INFLIXIMAB-DYYB
     Dosage: 300 MG, AT 0,2,6 WEEKS AND THEN EVERY 4 WEEKS
     Route: 042
     Dates: start: 20190527
  4. INFLECTRA [Suspect]
     Active Substance: INFLIXIMAB-DYYB
     Dosage: 300 MG, AT 0,2,6 WEEKS AND THEN EVERY 4 WEEKS
     Route: 042
     Dates: start: 20190916
  5. INFLECTRA [Suspect]
     Active Substance: INFLIXIMAB-DYYB
     Dosage: 300 MG, AT 0, 2, 6 WEEKS AND THEN EVERY 4 WEEKS
     Route: 042
     Dates: start: 20201124
  6. INFLECTRA [Suspect]
     Active Substance: INFLIXIMAB-DYYB
     Dosage: 300 MG, AT 0,2,6 WEEKS AND THEN EVERY 4 WEEKS
     Route: 042
     Dates: start: 20190722
  7. INFLECTRA [Suspect]
     Active Substance: INFLIXIMAB-DYYB
     Dosage: 300 MG, AT 0, 2, 6 WEEKS AND THEN EVERY 4 WEEKS
     Route: 042
     Dates: start: 20201027
  8. AZATHIOPRINE. [Concomitant]
     Active Substance: AZATHIOPRINE
     Dosage: 1.5 MG, DAILY
     Route: 065
  9. PENTASA [Concomitant]
     Active Substance: MESALAMINE
     Dosage: 1 DF, DAILY (IN THE EVENING)
     Route: 054
  10. PREDNISONE. [Concomitant]
     Active Substance: PREDNISONE
     Dosage: 40 MG, TAPERING BY 5 MG UNTIL AT 20 MG
  11. VITAMINE D [Concomitant]
     Active Substance: CHOLECALCIFEROL
     Dosage: 3000 IU, DAILY
     Route: 065
  12. INFLECTRA [Suspect]
     Active Substance: INFLIXIMAB-DYYB
     Indication: COLITIS ULCERATIVE
     Dosage: 300 MG, AT 0,2,6 WEEKS AND THEN EVERY 4 WEEKS
     Route: 042
     Dates: start: 20181115
  13. INFLECTRA [Suspect]
     Active Substance: INFLIXIMAB-DYYB
     Dosage: 300 MG, AT 0,2,6 WEEKS AND THEN EVERY 4 WEEKS
     Route: 042
     Dates: start: 20190304
  14. INFLECTRA [Suspect]
     Active Substance: INFLIXIMAB-DYYB
     Dosage: 300 MG, AT 0,2,6 WEEKS AND THEN EVERY 4 WEEKS
     Route: 042
     Dates: start: 20190819
  15. INFLECTRA [Suspect]
     Active Substance: INFLIXIMAB-DYYB
     Dosage: 300 MG, AT 0, 2, 6 WEEKS AND THEN EVERY 4 WEEKS
     Route: 042
     Dates: start: 20191113
  16. ENTOCORT [Concomitant]
     Active Substance: BUDESONIDE
     Dosage: MORNING
     Route: 054
  17. MEZAVANT [Concomitant]
     Active Substance: MESALAMINE
     Dosage: 4.8 G, DAILY (4X 1.2 G TABS DAILY)
     Route: 065
  18. INFLECTRA [Suspect]
     Active Substance: INFLIXIMAB-DYYB
     Dosage: 300 MG, AT 0,2,6 WEEKS AND THEN EVERY 4 WEEKS
     Route: 042
     Dates: start: 20181126
  19. INFLECTRA [Suspect]
     Active Substance: INFLIXIMAB-DYYB
     Dosage: 300 MG, AT 0, 2, 6 WEEKS AND THEN EVERY 4 WEEKS
     Route: 042
     Dates: start: 20200108
  20. INFLECTRA [Suspect]
     Active Substance: INFLIXIMAB-DYYB
     Dosage: 300 MG, AT 0, 2, 6 WEEKS AND THEN EVERY 4 WEEKS
     Route: 042
     Dates: start: 20200309
  21. VITAMIN B12 [Concomitant]
     Active Substance: CYANOCOBALAMIN
     Dosage: 1000 UG, DAILY
     Route: 054
  22. INFLECTRA [Suspect]
     Active Substance: INFLIXIMAB-DYYB
     Dosage: 300 MG, AT 0,2,6 WEEKS AND THEN EVERY 4 WEEKS
     Route: 042
     Dates: start: 20190626
  23. INFLECTRA [Suspect]
     Active Substance: INFLIXIMAB-DYYB
     Dosage: 300 MG, AT 0, 2, 6 WEEKS AND THEN EVERY 4 WEEKS
     Route: 042
     Dates: start: 20200406
  24. INFLECTRA [Suspect]
     Active Substance: INFLIXIMAB-DYYB
     Dosage: 300 MG, AT 0, 2, 6 WEEKS AND THEN EVERY 4 WEEKS
     Route: 042
     Dates: start: 20201222
  25. PREDNISONE. [Concomitant]
     Active Substance: PREDNISONE
     Dosage: 20 MG, (TAPERING BY 2.5 A WEEK UNTIL COMPLETELY OFF)
  26. PREDNISONE. [Concomitant]
     Active Substance: PREDNISONE
     Dosage: 20 MG, (TAPERING BY 5 MG UNTIL OFF)
     Route: 065
     Dates: start: 20190118
  27. INFLECTRA [Suspect]
     Active Substance: INFLIXIMAB-DYYB
     Dosage: 300 MG, AT 0,2,6 WEEKS AND THEN EVERY 4 WEEKS
     Route: 042
     Dates: start: 20181207
  28. INFLECTRA [Suspect]
     Active Substance: INFLIXIMAB-DYYB
     Dosage: 300 MG, AT 0,2,6 WEEKS AND THEN EVERY 4 WEEKS
     Route: 042
     Dates: start: 20190107
  29. INFLECTRA [Suspect]
     Active Substance: INFLIXIMAB-DYYB
     Dosage: 300 MG, AT 0, 2, 6 WEEKS AND THEN EVERY 4 WEEKS
     Route: 042
     Dates: start: 20200206
  30. INFLECTRA [Suspect]
     Active Substance: INFLIXIMAB-DYYB
     Dosage: 300 MG, AT 0, 2, 6 WEEKS AND THEN EVERY 4 WEEKS
     Route: 042
     Dates: start: 20200707
  31. INFLECTRA [Suspect]
     Active Substance: INFLIXIMAB-DYYB
     Dosage: 300 MG, AT 0, 2, 6 WEEKS AND THEN EVERY 4 WEEKS
     Route: 042
     Dates: start: 20200929
  32. INFLECTRA [Suspect]
     Active Substance: INFLIXIMAB-DYYB
     Dosage: 300 MG, AT 0,2,6 WEEKS AND THEN EVERY 4 WEEKS
     Route: 042
     Dates: start: 20190107
  33. INFLECTRA [Suspect]
     Active Substance: INFLIXIMAB-DYYB
     Dosage: 300 MG, AT 0,2,6 WEEKS AND THEN EVERY 4 WEEKS
     Route: 042
     Dates: start: 20190204
  34. INFLECTRA [Suspect]
     Active Substance: INFLIXIMAB-DYYB
     Dosage: 300 MG, AT 0, 2, 6 WEEKS AND THEN EVERY 4 WEEKS
     Route: 042
     Dates: start: 20191015
  35. INFLECTRA [Suspect]
     Active Substance: INFLIXIMAB-DYYB
     Dosage: 300 MG, AT 0, 2, 6 WEEKS AND THEN EVERY 4 WEEKS
     Route: 042
     Dates: start: 20191212
  36. INFLECTRA [Suspect]
     Active Substance: INFLIXIMAB-DYYB
     Dosage: 300 MG, AT 0, 2, 6 WEEKS AND THEN EVERY 4 WEEKS
     Route: 042
     Dates: start: 20200508

REACTIONS (18)
  - Product use issue [Unknown]
  - Muscular weakness [Not Recovered/Not Resolved]
  - Nasal congestion [Unknown]
  - Drug ineffective [Unknown]
  - Blood pressure increased [Unknown]
  - Off label use [Unknown]
  - Weight increased [Unknown]
  - Off label use [Unknown]
  - Drug level above therapeutic [Unknown]
  - Pelvic pain [Unknown]
  - Therapeutic response shortened [Unknown]
  - Heart rate increased [Unknown]
  - Intentional product use issue [Unknown]
  - Abdominal distension [Unknown]
  - Condition aggravated [Recovered/Resolved]
  - Fatigue [Recovering/Resolving]
  - Infusion site pain [Unknown]
  - Oropharyngeal pain [Recovering/Resolving]

NARRATIVE: CASE EVENT DATE: 20181115
